FAERS Safety Report 8370943-5 (Version None)
Quarter: 2012Q2

REPORT INFORMATION
  Report Type: 
  Country: None (occurrence: None)
  Receive Date: 20120518
  Receipt Date: 20120503
  Transmission Date: 20120825
  Serious: Yes (Hospitalization)
  Sender: FDA-Public Use
  Company Number: GB-WATSON-2012-08250

PATIENT
  Age: 34 Year
  Sex: Male

DRUGS (4)
  1. LAMOTRIGINE [Suspect]
     Indication: GRAND MAL CONVULSION
     Dosage: UNK
     Route: 048
     Dates: start: 20120213, end: 20120409
  2. ACETAMINOPHEN [Concomitant]
     Indication: PRODUCT USED FOR UNKNOWN INDICATION
     Dosage: UNK
     Route: 065
  3. LEVETIRACETAM [Concomitant]
     Indication: PRODUCT USED FOR UNKNOWN INDICATION
     Dosage: UNK
     Route: 065
  4. ALBUTEROL [Concomitant]
     Indication: PRODUCT USED FOR UNKNOWN INDICATION
     Dosage: UNK
     Route: 065

REACTIONS (26)
  - FEELING OF BODY TEMPERATURE CHANGE [None]
  - RASH ERYTHEMATOUS [None]
  - ANGIOEDEMA [None]
  - LIVER FUNCTION TEST ABNORMAL [None]
  - BODY TEMPERATURE INCREASED [None]
  - CONJUNCTIVAL IRRITATION [None]
  - EYELID OEDEMA [None]
  - INFLUENZA LIKE ILLNESS [None]
  - MOUTH ULCERATION [None]
  - OROPHARYNGEAL PAIN [None]
  - LYMPHADENOPATHY [None]
  - DRUG-INDUCED LIVER INJURY [None]
  - NAUSEA [None]
  - SWELLING FACE [None]
  - PAIN [None]
  - VOMITING [None]
  - ABDOMINAL PAIN [None]
  - DRUG RASH WITH EOSINOPHILIA AND SYSTEMIC SYMPTOMS [None]
  - HEADACHE [None]
  - FATIGUE [None]
  - RASH PRURITIC [None]
  - EOSINOPHILIA [None]
  - ARTHRALGIA [None]
  - PRURITUS [None]
  - DIARRHOEA [None]
  - ODYNOPHAGIA [None]
